FAERS Safety Report 25830153 (Version 1)
Quarter: 2025Q3

REPORT INFORMATION
  Report Type: Report from Study
  Country: CN (occurrence: CN)
  Receive Date: 20250922
  Receipt Date: 20250922
  Transmission Date: 20251021
  Serious: Yes (Other)
  Sender: ACCORD
  Company Number: CN-Accord-505430

PATIENT

DRUGS (5)
  1. PIRFENIDONE [Suspect]
     Active Substance: PIRFENIDONE
     Indication: Traumatic lung injury
     Dosage: WEEK 1
     Route: 048
  2. METHYLPREDNISOLONE [Concomitant]
     Active Substance: METHYLPREDNISOLONE
  3. METHYLPREDNISOLONE [Concomitant]
     Active Substance: METHYLPREDNISOLONE
     Route: 042
  4. PIRFENIDONE [Suspect]
     Active Substance: PIRFENIDONE
     Indication: Traumatic lung injury
     Dosage: WEEK 2
     Route: 048
  5. PIRFENIDONE [Suspect]
     Active Substance: PIRFENIDONE
     Indication: Traumatic lung injury
     Dosage: WEEK 3 AND BEYOND
     Route: 048

REACTIONS (1)
  - Thrombocytopenia [Unknown]
